FAERS Safety Report 17986688 (Version 1)
Quarter: 2020Q3

REPORT INFORMATION
  Report Type: Spontaneous
  Country: GB (occurrence: GB)
  Receive Date: 20200706
  Receipt Date: 20200706
  Transmission Date: 20201103
  Serious: Yes (Other)
  Sender: FDA-Public Use
  Company Number: GB-AMGEN-GBRSP2020107136

PATIENT
  Age: 68 Year
  Sex: Female

DRUGS (25)
  1. BISOPROLOL [Concomitant]
     Active Substance: BISOPROLOL
     Dosage: 1.25MG AND 2.5MG TABLETS
  2. LACTULOSE. [Concomitant]
     Active Substance: LACTULOSE
     Dosage: SPOONFUL
  3. BENDROFLUMETHIAZIDE [Concomitant]
     Active Substance: BENDROFLUMETHIAZIDE
  4. OXERUTINS [Concomitant]
  5. ADCAL D3 [Concomitant]
     Active Substance: CALCIUM CARBONATE\CHOLECALCIFEROL
     Dosage: 1500MG/400UNIT
  6. ADIZEM [Concomitant]
     Active Substance: DILTIAZEM HYDROCHLORIDE
  7. GLYCERYL TRINITRATE [Concomitant]
     Active Substance: NITROGLYCERIN
  8. FEXOFENADINE [Concomitant]
     Active Substance: FEXOFENADINE HYDROCHLORIDE
  9. ORAMORPH SR SUSTAINED RELEASE [Concomitant]
     Active Substance: MORPHINE SULFATE
     Dosage: 10MG/5ML AS DIRECTED.
  10. ELANTAN [Concomitant]
     Active Substance: ISOSORBIDE MONONITRATE
     Dosage: 25
  11. MEBEVERINE [Concomitant]
     Active Substance: MEBEVERINE
  12. HYPROMELLOSE [Concomitant]
     Active Substance: HYPROMELLOSES
     Dosage: USED IN BOTH EYES.
  13. MELATONIN [Concomitant]
     Active Substance: MELATONIN
     Dosage: AT NIGHT.
  14. PRAVASTATIN. [Concomitant]
     Active Substance: PRAVASTATIN
  15. APIXABAN [Concomitant]
     Active Substance: APIXABAN
  16. CODEINE [Concomitant]
     Active Substance: CODEINE
     Dosage: ONE OR TWO TO BE TAKEN FOUR TIMES A DAY.
  17. ANASTROZOLE. [Concomitant]
     Active Substance: ANASTROZOLE
  18. PARACETAMOL [Concomitant]
     Active Substance: ACETAMINOPHEN
  19. ACETYLSALICYLIC ACID [Concomitant]
     Active Substance: ASPIRIN
  20. OMEPRAZOLE. [Concomitant]
     Active Substance: OMEPRAZOLE
  21. GAVISCON ADVANCE [POTASSIUM BICARBONATE;SODIUM ALGINATE] [Concomitant]
  22. PERTUZUMAB. [Concomitant]
     Active Substance: PERTUZUMAB
  23. CITALOPRAM [Concomitant]
     Active Substance: CITALOPRAM HYDROBROMIDE
  24. PROLIA [Suspect]
     Active Substance: DENOSUMAB
     Indication: PRODUCT USED FOR UNKNOWN INDICATION
     Dosage: UNK
     Route: 065
  25. ORAMORPH SR SUSTAINED RELEASE [Concomitant]
     Active Substance: MORPHINE SULFATE
     Dosage: 10MG/5ML RECENTLY INCREASED BY MARIE CURSE NURSE.

REACTIONS (1)
  - Femoral neck fracture [Recovered/Resolved]
